FAERS Safety Report 7157846-9 (Version None)
Quarter: 2010Q4

REPORT INFORMATION
  Report Type: 
  Country: None (occurrence: None)
  Receive Date: 20101214
  Receipt Date: 20101018
  Transmission Date: 20110411
  Serious: No
  Sender: FDA-Public Use
  Company Number: A0887520A

PATIENT
  Sex: Female

DRUGS (1)
  1. NICORETTE (MINT) [Suspect]

REACTIONS (1)
  - OBSESSIVE THOUGHTS [None]
